FAERS Safety Report 21032130 (Version 9)
Quarter: 2023Q1

REPORT INFORMATION
  Report Type: Spontaneous
  Country: CA (occurrence: CA)
  Receive Date: 20220701
  Receipt Date: 20230227
  Transmission Date: 20230418
  Serious: Yes (Hospitalization, Other)
  Sender: FDA-Public Use
  Company Number: CA-CELLTRION INC.-2022CA010377

PATIENT

DRUGS (28)
  1. INFLECTRA [Suspect]
     Active Substance: INFLIXIMAB-DYYB
     Indication: Crohn^s disease
     Dosage: 5 MG/KG, Q 0, 2, 6 WEEKS, THEN EVERY 8 WEEKS
     Route: 042
     Dates: start: 20170911, end: 20190102
  2. INFLECTRA [Suspect]
     Active Substance: INFLIXIMAB-DYYB
     Dosage: 5 MG/KG, EVERY 6 WEEKS
     Route: 042
     Dates: start: 20190220
  3. INFLECTRA [Suspect]
     Active Substance: INFLIXIMAB-DYYB
     Dosage: 5 MG/KG, EVERY 6 WEEKS
     Route: 042
     Dates: start: 20220511
  4. INFLECTRA [Suspect]
     Active Substance: INFLIXIMAB-DYYB
     Dosage: 5 MG/KG, EVERY 6 WEEKS
     Route: 042
     Dates: start: 20220620
  5. INFLECTRA [Suspect]
     Active Substance: INFLIXIMAB-DYYB
     Dosage: 5 MG/KG, EVERY 6 WEEKS
     Route: 042
     Dates: start: 20220804
  6. INFLECTRA [Suspect]
     Active Substance: INFLIXIMAB-DYYB
     Dosage: 5 MG/KG, EVERY 6 WEEKS
     Route: 042
     Dates: start: 20230105
  7. INFLECTRA [Suspect]
     Active Substance: INFLIXIMAB-DYYB
     Dosage: 545 MG (5 MG/KG), EVERY 6 WEEKS
     Route: 042
     Dates: start: 20230216
  8. AMITRIPTYLINE [Concomitant]
     Active Substance: AMITRIPTYLINE
     Dosage: 1 DF, DOSAGE IS UNKNOWN
     Route: 065
  9. ALBUTEROL [Concomitant]
     Active Substance: ALBUTEROL
     Dosage: 1 DF DOSAGE IS UNKNOWN
     Route: 065
  10. BOTOX [Concomitant]
     Active Substance: ONABOTULINUMTOXINA
     Dosage: 1 DF, DOSAGE IS UNKNOWN
     Route: 065
  11. CALCITE [CALCIUM CARBONATE] [Concomitant]
     Dosage: 1 DF, DAILY (1X/DAY), DOSE IS UNKNOWN
     Route: 048
  12. CALCIUM [Concomitant]
     Active Substance: CALCIUM
     Dosage: 1 DF, DAILY (1X/DAY), DOSE IS UNKNOWN, OD
     Route: 048
  13. CORTISONE [Concomitant]
     Active Substance: CORTISONE
     Indication: Inflammatory bowel disease
     Dosage: 1 DF, DOSAGE IS UNKNOWN, 8 TABLETS, TAPER FOR 8 WEEKS
     Route: 048
     Dates: start: 20201029
  14. JANUVIA [Concomitant]
     Active Substance: SITAGLIPTIN PHOSPHATE
     Indication: Diabetes mellitus
     Dosage: 1 DF, DOSAGE IS UNKNOWN
     Route: 065
  15. MIRTAZAPINE [Concomitant]
     Active Substance: MIRTAZAPINE
     Dosage: 30 MG, DAILY (1X/DAY/OD), HS
     Route: 048
  16. MONTELUKAST [Concomitant]
     Active Substance: MONTELUKAST SODIUM
     Dosage: 1 DF, DOSAGE IS UNKNOWN
     Route: 065
  17. NITROGLYCERIN TRANSDERMAL DELIVERY SYSTEM [Concomitant]
     Active Substance: NITROGLYCERIN
     Dosage: 1 DF, 0.4 MG TRANS- DERMAL, PATCHES
     Route: 062
  18. NOVOGESIC [NIMESULIDE] [Concomitant]
     Dosage: 1 DF, DOSAGE IS UNKNOWN
     Route: 065
  19. PANTOPRAZOLE [Concomitant]
     Active Substance: PANTOPRAZOLE
     Dosage: 1 DF, DOSAGE IS UNKNOWN
     Route: 065
  20. PREGABALIN [Concomitant]
     Active Substance: PREGABALIN
     Dosage: 125 (75 MG AM AND 50 MG PM)
     Route: 065
  21. BECLOMETHASONE DIPROPIONATE [Concomitant]
     Active Substance: BECLOMETHASONE DIPROPIONATE
     Dosage: 1 DF, DOSAGE IS UNKNOWN
     Route: 065
  22. ALBUTEROL [Concomitant]
     Active Substance: ALBUTEROL
     Dosage: 1 DF, DOSAGE IS UNKNOWN
     Route: 065
  23. SPIRIVA [Concomitant]
     Active Substance: TIOTROPIUM BROMIDE MONOHYDRATE
     Dosage: 1 DF, DOSAGE IS UNKNOWN
     Route: 065
  24. SUMATRIPTAN [Concomitant]
     Active Substance: SUMATRIPTAN
     Indication: Migraine
     Dosage: 50 MG, AS NEEDED, FREQUENCY UNKNOWN, PRN
     Route: 048
  25. SYMBICORT [Concomitant]
     Active Substance: BUDESONIDE\FORMOTEROL FUMARATE DIHYDRATE
     Dosage: 1 DF, DOSAGE IS UNKNOWN
     Route: 065
  26. SYNTHROID [Concomitant]
     Active Substance: LEVOTHYROXINE SODIUM
     Dosage: 1 DF, DOSAGE IS UNKNOWN
     Route: 065
  27. TOPIRAMATE [Concomitant]
     Active Substance: TOPIRAMATE
     Dosage: 1 DF, DOSAGE IS UNKNOWN
     Route: 065
  28. VERAPAMIL [Concomitant]
     Active Substance: VERAPAMIL HYDROCHLORIDE
     Dosage: 1 DF, DOSAGE IS UNKNOWN
     Route: 065

REACTIONS (7)
  - Umbilical hernia [Recovered/Resolved]
  - Infection [Recovered/Resolved]
  - Post procedural haemorrhage [Recovered/Resolved]
  - Condition aggravated [Recovering/Resolving]
  - Off label use [Unknown]
  - Abdominal rigidity [Unknown]
  - Arthralgia [Unknown]

NARRATIVE: CASE EVENT DATE: 20220101
